FAERS Safety Report 10695079 (Version 2)
Quarter: 2015Q1

REPORT INFORMATION
  Report Type: Spontaneous
  Country: US (occurrence: None)
  Receive Date: 20150105
  Receipt Date: 20150126
  Transmission Date: 20150721
  Serious: Yes (Hospitalization, Other)
  Sender: FDA-Public Use
  Company Number: 2014-US-017147

PATIENT
  Age: 58 Year
  Sex: Male
  Weight: 106.6 kg

DRUGS (1)
  1. XYREM [Suspect]
     Active Substance: SODIUM OXYBATE
     Indication: NARCOLEPSY
     Route: 048
     Dates: start: 201411, end: 2014

REACTIONS (3)
  - Shoulder operation [None]
  - Musculoskeletal pain [None]
  - Arthropathy [None]

NARRATIVE: CASE EVENT DATE: 20141222
